FAERS Safety Report 9979857 (Version 1)
Quarter: 2014Q1

REPORT INFORMATION
  Report Type: Report from Study
  Country: US (occurrence: US)
  Receive Date: 20140307
  Receipt Date: 20140307
  Transmission Date: 20141002
  Serious: No
  Sender: FDA-Public Use
  Company Number: US-ABBVIE-13P-163-1170548-00

PATIENT
  Age: 26 Year
  Sex: Female

DRUGS (9)
  1. HUMIRA [Suspect]
     Indication: PRODUCT USED FOR UNKNOWN INDICATION
     Route: 058
     Dates: start: 200709, end: 201208
  2. HUMIRA [Suspect]
     Dosage: DAY ONE: INJECT 160MG (FOUR PENS)
     Route: 058
  3. HUMIRA [Suspect]
     Dosage: ON DAY EIGHT: INJECT 40MG (ONE PEN)
     Route: 058
  4. HUMIRA [Suspect]
     Dosage: ON DAY 15: INJECT 40MG (ONE PEN)
     Route: 058
  5. LIALDA [Concomitant]
     Indication: PRODUCT USED FOR UNKNOWN INDICATION
  6. PREDNISONE [Concomitant]
     Indication: PRODUCT USED FOR UNKNOWN INDICATION
  7. AZATHIOPRINE [Concomitant]
     Indication: PRODUCT USED FOR UNKNOWN INDICATION
  8. VIT B12 [Concomitant]
     Indication: PRODUCT USED FOR UNKNOWN INDICATION
  9. IRON [Concomitant]
     Indication: PRODUCT USED FOR UNKNOWN INDICATION
     Dosage: 50 MG TR

REACTIONS (3)
  - Injection site bruising [Recovered/Resolved]
  - Anxiety [Recovered/Resolved]
  - Injection site erythema [Recovered/Resolved]
